FAERS Safety Report 6443439-5 (Version None)
Quarter: 2009Q4

REPORT INFORMATION
  Report Type: 
  Country: None (occurrence: None)
  Receive Date: 20091117
  Receipt Date: 20091102
  Transmission Date: 20100525
  Serious: Yes (Hospitalization)
  Sender: FDA-Public Use
  Company Number: ES-GENENTECH-293895

PATIENT
  Age: 7 Year
  Sex: Male

DRUGS (3)
  1. RITUXIMAB [Suspect]
     Indication: ACUTE LYMPHOCYTIC LEUKAEMIA
     Route: 065
  2. TACROLIMUS [Suspect]
     Indication: ACUTE LYMPHOCYTIC LEUKAEMIA
     Route: 065
  3. VORICONAZOLE [Suspect]
     Indication: ASPERGILLOSIS
     Route: 065

REACTIONS (3)
  - ACUTE LYMPHOCYTIC LEUKAEMIA [None]
  - BRONCHOPULMONARY ASPERGILLOSIS [None]
  - NEUTROPENIA [None]
